FAERS Safety Report 10034778 (Version 1)
Quarter: 2014Q1

REPORT INFORMATION
  Report Type: Spontaneous
  Country: US (occurrence: None)
  Receive Date: 20140306
  Receipt Date: 20140306
  Transmission Date: 20141002
  Serious: Yes (Hospitalization)
  Sender: FDA-Public Use
  Company Number: 163-21880-13010225

PATIENT
  Age: 46 Year
  Sex: Male

DRUGS (16)
  1. REVLIMID (LENALIDOMIDE) (25 MILLIGRAM, CAPSULES) [Suspect]
     Indication: PLASMA CELL MYELOMA
     Route: 048
     Dates: start: 200904, end: 2009
  2. CARFILZOMIB [Concomitant]
  3. DEXAMETHASONE [Concomitant]
  4. CYCLOPHOSPHAMIDE [Concomitant]
  5. PEGYLATED G-CSF [Concomitant]
  6. MELPHALAN [Concomitant]
  7. BORTEZOMIB [Concomitant]
  8. AMBIEN (ZOLPIDEM TARTRATE) [Concomitant]
  9. DULCOLAX (BISACODYL) [Concomitant]
  10. HYDROCONDONE/APAP (VICODIN) [Concomitant]
  11. TRAMADOL [Concomitant]
  12. ZOMETA (ZOLEDRONIC ACID) [Concomitant]
  13. FLUIDS [Concomitant]
  14. FENTANYL [Concomitant]
  15. RED BLOOD CELL [Concomitant]
  16. IV FLUIDS [Concomitant]

REACTIONS (1)
  - Plasma cell myeloma [None]
